FAERS Safety Report 5938235-9 (Version None)
Quarter: 2008Q4

REPORT INFORMATION
  Report Type: 
  Country: None (occurrence: None)
  Receive Date: 20081031
  Receipt Date: 20081022
  Transmission Date: 20090506
  Serious: Yes (Life-Threatening)
  Sender: FDA-Public Use
  Company Number: JP-PFIZER INC-2008089402

PATIENT
  Age: 35 Year
  Sex: Female
  Weight: 44 kg

DRUGS (6)
  1. SOLU-MEDROL [Suspect]
     Dosage: TEXT:1 GM/DAY
     Route: 042
     Dates: start: 20080929, end: 20081001
  2. PREDONINE [Suspect]
     Route: 048
     Dates: start: 20081002
  3. SELBEX [Concomitant]
  4. ALENDRONATE SODIUM [Concomitant]
  5. COMELIAN [Concomitant]
  6. COTRIM [Concomitant]

REACTIONS (1)
  - CHORIORETINOPATHY [None]
